FAERS Safety Report 24377134 (Version 2)
Quarter: 2025Q1

REPORT INFORMATION
  Report Type: Report from Study
  Country: US (occurrence: US)
  Receive Date: 20240930
  Receipt Date: 20250130
  Transmission Date: 20250409
  Serious: Yes (Other)
  Sender: UCB
  Company Number: US-UCBSA-2024048017

PATIENT
  Sex: Male
  Weight: 55.3 kg

DRUGS (2)
  1. FINTEPLA [Suspect]
     Active Substance: FENFLURAMINE
     Indication: Severe myoclonic epilepsy of infancy
     Dosage: 3.1 MILLILITER, 2X/DAY (BID)
     Route: 048
     Dates: start: 20230906
  2. FINTEPLA [Suspect]
     Active Substance: FENFLURAMINE

REACTIONS (1)
  - Seizure [Not Recovered/Not Resolved]
